FAERS Safety Report 13460490 (Version 2)
Quarter: 2018Q1

REPORT INFORMATION
  Report Type: Spontaneous
  Country: US (occurrence: US)
  Receive Date: 20170420
  Receipt Date: 20180216
  Transmission Date: 20180508
  Serious: No
  Sender: FDA-Public Use
  Company Number: US-PFIZER INC-2017168332

PATIENT
  Age: 87 Year
  Sex: Female

DRUGS (1)
  1. BUPIVACAINE HCL [Suspect]
     Active Substance: BUPIVACAINE HYDROCHLORIDE
     Indication: SPINAL ANAESTHESIA
     Dosage: UNK
     Dates: start: 20170405, end: 20170405

REACTIONS (1)
  - Drug ineffective [Unknown]

NARRATIVE: CASE EVENT DATE: 20170405
